FAERS Safety Report 8289016-5 (Version None)
Quarter: 2012Q2

REPORT INFORMATION
  Report Type: 
  Country: None (occurrence: None)
  Receive Date: 20120417
  Receipt Date: 20120412
  Transmission Date: 20120825
  Serious: No
  Sender: FDA-Public Use
  Company Number: US-BAYER-2012-036544

PATIENT

DRUGS (1)
  1. GADAVIST [Suspect]

REACTIONS (1)
  - HYPERSENSITIVITY [None]
